FAERS Safety Report 12607272 (Version 1)
Quarter: 2016Q3

REPORT INFORMATION
  Report Type: Spontaneous
  Country: JP (occurrence: JP)
  Receive Date: 20160729
  Receipt Date: 20160729
  Transmission Date: 20161109
  Serious: Yes (Other)
  Sender: FDA-Public Use
  Company Number: JP-UNITED THERAPEUTICS-UNT-2015-013040

PATIENT
  Age: 21 Year
  Sex: Female
  Weight: 38 kg

DRUGS (14)
  1. REVATIO [Concomitant]
     Active Substance: SILDENAFIL CITRATE
     Indication: PULMONARY ARTERIAL HYPERTENSION
     Dosage: UNK
     Route: 048
     Dates: start: 2007
  2. BERASUS [Concomitant]
     Active Substance: BERAPROST SODIUM
     Indication: PULMONARY ARTERIAL HYPERTENSION
     Dosage: UNK
     Route: 048
     Dates: start: 20140917
  3. REMODULIN [Suspect]
     Active Substance: TREPROSTINIL
     Dosage: 0.002 ?G/KG, CONTINUING
     Route: 058
  4. WARFARIN [Concomitant]
     Active Substance: WARFARIN
     Indication: ATRIAL SEPTAL DEFECT
     Dosage: UNK
     Route: 048
  5. ADCIRCA [Concomitant]
     Active Substance: TADALAFIL
     Indication: PULMONARY ARTERIAL HYPERTENSION
     Dosage: UNK
     Route: 048
     Dates: start: 20141203
  6. REMODULIN [Suspect]
     Active Substance: TREPROSTINIL
     Dosage: 0.0244 ?G/KG, CONTINUING
     Route: 058
     Dates: end: 201603
  7. TRAMAL [Suspect]
     Active Substance: TRAMADOL
     Indication: PAIN
     Route: 065
  8. VOLIBRIS [Concomitant]
     Active Substance: AMBRISENTAN
     Indication: PULMONARY ARTERIAL HYPERTENSION
     Dosage: UNK
     Route: 048
     Dates: start: 2012
  9. LASIX [Concomitant]
     Active Substance: FUROSEMIDE
     Indication: CARDIAC FAILURE CHRONIC
     Dosage: UNK
  10. REMODULIN [Suspect]
     Active Substance: TREPROSTINIL
     Dosage: 0.0071 ?G/KG, CONTINUING
     Route: 058
  11. IRON [Suspect]
     Active Substance: IRON
     Indication: PRODUCT USED FOR UNKNOWN INDICATION
     Dosage: UNK
     Route: 065
  12. FERROMIA [Concomitant]
     Active Substance: FERROUS CITRATE
     Indication: ANAEMIA
     Dosage: UNK
     Route: 048
  13. MUCOSTA [Concomitant]
     Active Substance: REBAMIPIDE
     Indication: GASTRITIS PROPHYLAXIS
     Dosage: UNK
     Route: 048
  14. REMODULIN [Suspect]
     Active Substance: TREPROSTINIL
     Indication: PULMONARY ARTERIAL HYPERTENSION
     Dosage: 0.0011 ?G/KG, CONTINUING
     Route: 058
     Dates: start: 20151006, end: 201603

REACTIONS (3)
  - Device deployment issue [Recovered/Resolved]
  - Infusion site pain [Recovering/Resolving]
  - Nausea [Recovering/Resolving]

NARRATIVE: CASE EVENT DATE: 20151006
